FAERS Safety Report 25022378 (Version 1)
Quarter: 2025Q1

REPORT INFORMATION
  Report Type: Report from Study
  Country: US (occurrence: US)
  Receive Date: 20250228
  Receipt Date: 20250228
  Transmission Date: 20250408
  Serious: Yes (Other)
  Sender: ALEXION PHARMACEUTICALS
  Company Number: US-ASTRAZENECA-202502USA020026US

PATIENT
  Age: 5 Year

DRUGS (1)
  1. STRENSIQ [Suspect]
     Active Substance: ASFOTASE ALFA
     Indication: Phosphorus metabolism disorder
     Dosage: 32 MILLIGRAM, TIW
     Route: 065

REACTIONS (5)
  - Astrocytoma [Unknown]
  - Ankle fracture [Unknown]
  - Peripheral swelling [Unknown]
  - Lipohypertrophy [Unknown]
  - Fall [Unknown]
